FAERS Safety Report 15190267 (Version 2)
Quarter: 2018Q4

REPORT INFORMATION
  Report Type: Spontaneous
  Country: GB (occurrence: GB)
  Receive Date: 20180724
  Receipt Date: 20181016
  Transmission Date: 20190204
  Serious: Yes (Other)
  Sender: FDA-Public Use
  Company Number: GB-DRREDDYS-USA/UKI/18/0102160

PATIENT
  Age: 45 Year
  Sex: Male

DRUGS (3)
  1. OLANZAPINE. [Suspect]
     Active Substance: OLANZAPINE
     Indication: SCHIZOPHRENIA
     Dosage: TITRATED TO A DOSE OF 10MG TWICE DAILY
     Route: 048
  2. LEVOTHYROXINE. [Concomitant]
     Active Substance: LEVOTHYROXINE
     Indication: HYPOTHYROIDISM
     Route: 065
  3. ZUCLOPENTHIXOL DECANOATE [Suspect]
     Active Substance: ZUCLOPENTHIXOL DECANOATE
     Indication: SCHIZOPHRENIA
     Dosage: DEPOT; TITRATED TO A DOSE OF 600MG ONCE WEEKLY
     Route: 065

REACTIONS (12)
  - Neuropathy peripheral [Recovered/Resolved]
  - Tachycardia [Unknown]
  - Weight decreased [Unknown]
  - Blood prolactin increased [Unknown]
  - Chest pain [Unknown]
  - Gynaecomastia [Recovered/Resolved]
  - Electrocardiogram QT prolonged [Unknown]
  - Type 2 diabetes mellitus [Recovering/Resolving]
  - Headache [Unknown]
  - Blood triglycerides increased [Unknown]
  - Hypertension [Unknown]
  - Arrhythmia [Unknown]
